FAERS Safety Report 8306349-4 (Version None)
Quarter: 2012Q2

REPORT INFORMATION
  Report Type: 
  Country: None (occurrence: None)
  Receive Date: 20120423
  Receipt Date: 20120316
  Transmission Date: 20120825
  Serious: Yes (Death)
  Sender: FDA-Public Use
  Company Number: PH-BAXTER-2012BAX000200

PATIENT
  Sex: Female

DRUGS (1)
  1. DIANEAL [Suspect]
     Route: 033
     Dates: start: 20111208

REACTIONS (4)
  - MYOCARDIAL INFARCTION [None]
  - ELECTROLYTE IMBALANCE [None]
  - DYSPNOEA [None]
  - OEDEMA [None]
